FAERS Safety Report 17768890 (Version 4)
Quarter: 2022Q4

REPORT INFORMATION
  Report Type: Spontaneous
  Country: BR (occurrence: BR)
  Receive Date: 20200512
  Receipt Date: 20221219
  Transmission Date: 20230113
  Serious: Yes (Other)
  Sender: FDA-Public Use
  Company Number: BR-SA-2020SA105686

PATIENT
  Sex: Female
  Weight: 82 kg

DRUGS (7)
  1. APIDRA [Suspect]
     Active Substance: INSULIN GLULISINE
     Indication: Type 1 diabetes mellitus
     Dosage: UNK, QID
     Route: 058
     Dates: start: 2017
  2. APIDRA [Suspect]
     Active Substance: INSULIN GLULISINE
     Dosage: 7 IU, QD (LUNCH TIME)
     Route: 065
  3. APIDRA [Suspect]
     Active Substance: INSULIN GLULISINE
     Dosage: 4-5 UNITS
     Dates: start: 20200703
  4. APIDRA [Suspect]
     Active Substance: INSULIN GLULISINE
     Dosage: 3 TO 4 IU
     Route: 065
  5. BASAGLAR [Concomitant]
     Active Substance: INSULIN GLARGINE
     Indication: Diabetes mellitus
     Dosage: 27 IU
     Route: 065
  6. BASAGLAR [Concomitant]
     Active Substance: INSULIN GLARGINE
     Dosage: UNK, QD
     Route: 058
     Dates: start: 2017
  7. TIROX [Concomitant]
     Indication: Thyroid disorder
     Dosage: UNK UNK, QD
     Route: 048
     Dates: start: 2000

REACTIONS (22)
  - Syncope [Unknown]
  - Fall [Unknown]
  - Impaired gastric emptying [Unknown]
  - Dyspepsia [Unknown]
  - Decreased appetite [Unknown]
  - Feeling hot [Unknown]
  - Dyspnoea [Unknown]
  - Thyroid disorder [Unknown]
  - Labyrinthitis [Recovered/Resolved]
  - Dizziness [Recovered/Resolved]
  - Vomiting [Recovered/Resolved]
  - Illness [Unknown]
  - Asthenia [Unknown]
  - Swelling [Unknown]
  - Fluid retention [Unknown]
  - Nervousness [Unknown]
  - Hyperhidrosis [Unknown]
  - Weight increased [Unknown]
  - Hyperglycaemia [Unknown]
  - Blood glucose increased [Recovered/Resolved]
  - Blood glucose decreased [Unknown]
  - Blood glucose fluctuation [Unknown]

NARRATIVE: CASE EVENT DATE: 20200421
